FAERS Safety Report 7692833-3 (Version None)
Quarter: 2011Q3

REPORT INFORMATION
  Report Type: 
  Country: None (occurrence: None)
  Receive Date: 20110819
  Receipt Date: 20110810
  Transmission Date: 20111222
  Serious: Yes (Other)
  Sender: FDA-Public Use
  Company Number: BO-JNJFOC-20110806488

PATIENT
  Age: 30 Year
  Sex: Female

DRUGS (3)
  1. CLONAZEPAM [Concomitant]
     Route: 065
  2. FLUOXETINE [Concomitant]
     Route: 065
  3. TOPIRAMATE [Suspect]
     Indication: MIGRAINE PROPHYLAXIS
     Route: 048

REACTIONS (1)
  - BLINDNESS [None]
